FAERS Safety Report 24779952 (Version 1)
Quarter: 2024Q4

REPORT INFORMATION
  Report Type: Spontaneous
  Country: IL (occurrence: IL)
  Receive Date: 20241226
  Receipt Date: 20241226
  Transmission Date: 20250114
  Serious: Yes (Other)
  Sender: NOVO NORDISK
  Company Number: IL-NOVOPROD-1340049

PATIENT
  Sex: Male

DRUGS (1)
  1. WEGOVY [Suspect]
     Active Substance: SEMAGLUTIDE
     Indication: Product used for unknown indication
     Dosage: 1.7 MG, QW
     Route: 058

REACTIONS (10)
  - Erectile dysfunction [Unknown]
  - Blood testosterone decreased [Unknown]
  - Spinal disorder [Unknown]
  - Dyspepsia [Unknown]
  - Road traffic accident [Unknown]
  - Anosmia [Unknown]
  - Asthenia [Unknown]
  - Fatigue [Unknown]
  - Abdominal distension [Unknown]
  - Dyspepsia [Unknown]
